FAERS Safety Report 7543792-5 (Version None)
Quarter: 2011Q2

REPORT INFORMATION
  Report Type: 
  Country: None (occurrence: None)
  Receive Date: 20110613
  Receipt Date: 20110601
  Transmission Date: 20111010
  Serious: Yes (Hospitalization)
  Sender: FDA-Public Use
  Company Number: US-EISAI INC-E3810-04728-SPO-US

PATIENT
  Age: 53 Year
  Sex: Male

DRUGS (9)
  1. LITHIUM [Suspect]
     Indication: BIPOLAR DISORDER
     Dosage: UNKNOWN
     Route: 065
  2. HUMIRA [Suspect]
     Route: 058
     Dates: start: 20110301
  3. ACIPHEX [Suspect]
     Dosage: UNKNOWN
     Route: 048
  4. DEPAKOTE [Suspect]
     Dosage: UNKNOWN
  5. TEMAZEPAM [Suspect]
     Dosage: UNKNOWN
     Route: 065
  6. PREDNISONE [Suspect]
     Indication: CROHN'S DISEASE
     Route: 065
  7. LISINOPRIL [Suspect]
     Indication: BLOOD PRESSURE INCREASED
     Dosage: UNKNOWN
     Route: 065
  8. THYROID TAB [Suspect]
     Dosage: UNKNOWN
     Route: 065
  9. CA++ [Suspect]
     Indication: VITAMIN SUPPLEMENTATION
     Dosage: UNKNOWN
     Route: 065

REACTIONS (3)
  - DYSARTHRIA [None]
  - TRANSIENT ISCHAEMIC ATTACK [None]
  - VISUAL IMPAIRMENT [None]
